FAERS Safety Report 7525105-8 (Version None)
Quarter: 2011Q2

REPORT INFORMATION
  Report Type: 
  Country: None (occurrence: None)
  Receive Date: 20110606
  Receipt Date: 20091120
  Transmission Date: 20111010
  Serious: Yes (Death, Other)
  Sender: FDA-Public Use
  Company Number: US-BAYER-200940046NA

PATIENT
  Age: 69 Year
  Sex: Female
  Weight: 91.156 kg

DRUGS (16)
  1. TRASYLOL [Suspect]
     Indication: MITRAL VALVE REPLACEMENT
     Dosage: 200 ML LOADING DOSE FOLLOWED BY 50 ML/HR INFUSION
     Route: 042
     Dates: start: 20030822, end: 20030822
  2. TRASYLOL [Suspect]
     Indication: AORTIC VALVE REPLACEMENT
     Dosage: 1 ML, ONCE, INTIAL TEST DOSE
     Route: 042
     Dates: start: 20030822, end: 20030822
  3. CEFUROXIME [Concomitant]
     Dosage: 1.5 G, UNK
     Route: 042
     Dates: start: 20030819
  4. MILRINONE [Concomitant]
     Dosage: 0.6 MG/KG/MINUTE
     Route: 042
     Dates: start: 20030822
  5. LEVOPHED [Concomitant]
     Dosage: 40 MG/KG/MIN
     Route: 042
     Dates: start: 20030822
  6. HEPARIN [Concomitant]
     Dosage: 27,000 UNITS
     Route: 042
     Dates: start: 20030822
  7. ZINACEF [Concomitant]
     Dosage: 1.5 G, UNK
     Route: 042
     Dates: start: 20030822
  8. MANNITOL [Concomitant]
     Dosage: 12.5 G, BYPASS
     Dates: start: 20030822
  9. COUMADIN [Concomitant]
     Dosage: 2.5 MG, QD
     Route: 048
  10. SOLU-MEDROL [Concomitant]
     Dosage: 1 G, UNK
     Route: 042
     Dates: start: 20030822
  11. LASIX [Concomitant]
     Dosage: 20 MG, UNK
     Route: 042
     Dates: start: 20030822
  12. PLATELETS [Concomitant]
     Dosage: 2 U, ONCE
     Route: 042
     Dates: start: 20030822
  13. FUROSEMIDE [Concomitant]
     Dosage: 40 MG, QD
     Route: 048
  14. VERAPAMIL [Concomitant]
     Dosage: 120 MG, TID
  15. LISINOPRIL [Concomitant]
     Indication: HYPERTENSION
     Dosage: 40 MG, QD
     Route: 048
     Dates: start: 19900101
  16. PLASMA [Concomitant]
     Dosage: 4 U, ONCE
     Route: 042
     Dates: start: 20030822

REACTIONS (11)
  - ANHEDONIA [None]
  - UNEVALUABLE EVENT [None]
  - DEPRESSION [None]
  - DEATH [None]
  - HYPOTENSION [None]
  - ANXIETY [None]
  - FEAR [None]
  - RENAL FAILURE [None]
  - CARDIOGENIC SHOCK [None]
  - PAIN [None]
  - INJURY [None]
